FAERS Safety Report 9531945 (Version 1)
Quarter: 2013Q3

REPORT INFORMATION
  Report Type: Spontaneous
  Country: BR (occurrence: BR)
  Receive Date: 20130918
  Receipt Date: 20130918
  Transmission Date: 20140515
  Serious: Yes (Hospitalization)
  Sender: FDA-Public Use
  Company Number: BR-ASTRAZENECA-2013SE68615

PATIENT
  Age: 61 Year
  Sex: Female
  Weight: 63 kg

DRUGS (5)
  1. ANASTROZOLE [Suspect]
     Route: 048
     Dates: start: 201210, end: 201301
  2. ATACAND COMB [Suspect]
     Indication: HYPERTENSION
     Dosage: 16/5 MG
     Route: 048
     Dates: start: 2003
  3. TAMOXIFEN [Suspect]
     Route: 048
     Dates: start: 201301, end: 201302
  4. JANUVIA [Concomitant]
     Indication: DIABETES MELLITUS
     Dates: start: 2005
  5. GLIMEPIRIDE [Concomitant]
     Indication: DIABETES MELLITUS
     Dates: start: 2005

REACTIONS (8)
  - Breast mass [Recovered/Resolved]
  - Myocardial infarction [Recovered/Resolved]
  - Gait disturbance [Unknown]
  - Helicobacter infection [Recovering/Resolving]
  - Stress [Recovering/Resolving]
  - Diabetes mellitus inadequate control [Recovering/Resolving]
  - Arthralgia [Not Recovered/Not Resolved]
  - Myalgia [Not Recovered/Not Resolved]
